FAERS Safety Report 5498723-9 (Version None)
Quarter: 2007Q4

REPORT INFORMATION
  Report Type: 
  Country: None (occurrence: None)
  Receive Date: 20071026
  Receipt Date: 20070710
  Transmission Date: 20080405
  Serious: No
  Sender: FDA-Public Use
  Company Number: A0662825A

PATIENT
  Sex: Female

DRUGS (6)
  1. ADVAIR DISKUS 100/50 [Suspect]
     Indication: ASTHMA
     Dosage: 1PUFF PER DAY
     Route: 055
     Dates: start: 20070501
  2. METOPROLOL [Concomitant]
  3. PREVACID [Concomitant]
  4. LIPITOR [Concomitant]
  5. ALBUTEROL [Concomitant]
  6. ATIVAN [Concomitant]

REACTIONS (3)
  - COUGH [None]
  - DIZZINESS [None]
  - WEIGHT INCREASED [None]
